FAERS Safety Report 6169878-8 (Version None)
Quarter: 2009Q2

REPORT INFORMATION
  Report Type: 
  Country: None (occurrence: None)
  Receive Date: 20090428
  Receipt Date: 20090417
  Transmission Date: 20091009
  Serious: Yes (Hospitalization, Other)
  Sender: FDA-Public Use
  Company Number: US-BAYER-200911211BCC

PATIENT
  Age: 76 Year
  Sex: Female

DRUGS (2)
  1. ALEVE [Suspect]
     Indication: ARTHRITIS
     Dosage: 1 ALEVE SMOTH GEL DAILY
     Route: 048
  2. ALEVE [Suspect]
     Dosage: 2 ALEVE SMOTH GELS DAILY
     Route: 048
     Dates: start: 20070101

REACTIONS (4)
  - ABDOMINAL PAIN UPPER [None]
  - BLOOD IRON DECREASED [None]
  - ENDOSCOPY [None]
  - LOSS OF CONSCIOUSNESS [None]
